FAERS Safety Report 9975731 (Version 1)
Quarter: 2014Q1

REPORT INFORMATION
  Report Type: Spontaneous
  Country: NO (occurrence: NO)
  Receive Date: 20140306
  Receipt Date: 20140306
  Transmission Date: 20141002
  Serious: Yes (Other)
  Sender: FDA-Public Use
  Company Number: NO-BAXTER-2014BAX010033

PATIENT
  Sex: 0

DRUGS (6)
  1. FEIBA 1000 E PULVER OG V?SKE TIL INFUSJONSV?SKE, OPPL?SNING [Suspect]
     Indication: HAEMOPHILIA
     Dosage: 100 U/KG
     Route: 065
  2. FEIBA 1000 E PULVER OG V?SKE TIL INFUSJONSV?SKE, OPPL?SNING [Suspect]
     Dosage: 200 U/KG
     Route: 065
  3. FEIBA 1000 E PULVER OG V?SKE TIL INFUSJONSV?SKE, OPPL?SNING [Suspect]
     Dosage: 150 U/KG
     Route: 065
  4. RFVIIA [Suspect]
     Indication: HAEMOPHILIA
     Dosage: 90 LG/KG
     Route: 065
  5. RFVIIA [Suspect]
     Dosage: 90 LG/KG
     Route: 065
  6. RFVIIA [Suspect]
     Dosage: 90 LG/KG
     Route: 065

REACTIONS (1)
  - Treatment failure [Unknown]
